FAERS Safety Report 8135216 (Version 4)
Quarter: 2014Q2

REPORT INFORMATION
  Report Type: Spontaneous
  Country: US (occurrence: US)
  Receive Date: 20110914
  Receipt Date: 20140625
  Transmission Date: 20141212
  Serious: Yes (Other)
  Sender: FDA-Public Use
  Company Number: US-PFIZER INC-2011211988

PATIENT
  Age: 80 Year
  Sex: Female

DRUGS (6)
  1. LIPITOR [Suspect]
     Dosage: 10 MG, 1X/DAY
     Dates: start: 200510, end: 200709
  2. LIPITOR [Suspect]
     Dosage: 10 MG, UNK
     Dates: start: 2010, end: 201011
  3. PREDNISONE [Suspect]
     Dosage: 20MG, UNK
  4. PREDNISONE [Suspect]
     Dosage: 17.5MG, UNK
     Dates: end: 201107
  5. PREDNISONE [Suspect]
     Dosage: 15 MG DAILY
     Dates: start: 201107
  6. PREDNISONE [Suspect]
     Dosage: 12.5 MG DAILY
     Dates: start: 20110901

REACTIONS (10)
  - Polymyositis [Not Recovered/Not Resolved]
  - Liver disorder [Unknown]
  - Blood creatine phosphokinase increased [Unknown]
  - Muscular weakness [Unknown]
  - Gait disturbance [Unknown]
  - Myalgia [Unknown]
  - Activities of daily living impaired [Unknown]
  - Osteopenia [Not Recovered/Not Resolved]
  - Vitamin D decreased [Unknown]
  - Alopecia [Not Recovered/Not Resolved]
